FAERS Safety Report 6683406-X (Version None)
Quarter: 2010Q2

REPORT INFORMATION
  Report Type: 
  Country: None (occurrence: None)
  Receive Date: 20100415
  Receipt Date: 20100406
  Transmission Date: 20101027
  Serious: Yes (Hospitalization, Other)
  Sender: FDA-Public Use
  Company Number: US-BAXTER-2009BH019322

PATIENT
  Age: 55 Year
  Sex: Female

DRUGS (11)
  1. PHENERGAN [Suspect]
     Indication: NAUSEA
     Route: 042
     Dates: start: 20071108
  2. PHENERGAN [Suspect]
     Indication: VOMITING
     Route: 042
     Dates: start: 20071108
  3. REGLAN [Concomitant]
     Indication: DRUG USE FOR UNKNOWN INDICATION
     Route: 042
     Dates: end: 20071108
  4. JANUVIA [Concomitant]
     Indication: DIABETES MELLITUS
     Route: 065
  5. ACCUPRIL [Concomitant]
     Indication: DRUG USE FOR UNKNOWN INDICATION
     Route: 065
  6. ZYRTEC [Concomitant]
     Indication: DRUG USE FOR UNKNOWN INDICATION
     Route: 065
  7. SINGULAIR [Concomitant]
     Indication: DRUG USE FOR UNKNOWN INDICATION
     Route: 065
  8. SYNTHROID [Concomitant]
     Indication: DRUG USE FOR UNKNOWN INDICATION
     Route: 065
  9. ALBUTEROL [Concomitant]
     Indication: DRUG USE FOR UNKNOWN INDICATION
     Route: 065
  10. DUONEB [Concomitant]
     Indication: DRUG USE FOR UNKNOWN INDICATION
     Route: 065
  11. ACIPHEX [Concomitant]
     Indication: DRUG USE FOR UNKNOWN INDICATION
     Route: 065

REACTIONS (12)
  - COMPARTMENT SYNDROME [None]
  - COMPLEX REGIONAL PAIN SYNDROME [None]
  - CORYNEBACTERIUM INFECTION [None]
  - CYANOSIS [None]
  - ERYTHEMA [None]
  - MUSCLE CONTRACTURE [None]
  - NEUROMA [None]
  - NEUROPATHY PERIPHERAL [None]
  - OEDEMA PERIPHERAL [None]
  - OSTEOARTHRITIS [None]
  - PAIN IN EXTREMITY [None]
  - TENDON DISORDER [None]
